FAERS Safety Report 16049251 (Version 3)
Quarter: 2019Q2

REPORT INFORMATION
  Report Type: Spontaneous
  Country: US (occurrence: US)
  Receive Date: 20190307
  Receipt Date: 20190503
  Transmission Date: 20190711
  Serious: Yes (Other)
  Sender: FDA-Public Use
  Company Number: US-ASTRAZENECA-2018SF33937

PATIENT
  Age: 49 Year
  Sex: Female
  Weight: 136.1 kg

DRUGS (37)
  1. PROTONIX [Suspect]
     Active Substance: PANTOPRAZOLE SODIUM
     Dosage: PANTOPRAZOLE-TAKE 1 TABLET ORALLY TWICE DAILY
     Route: 048
     Dates: start: 20130624
  2. PREDNISONE. [Concomitant]
     Active Substance: PREDNISONE
  3. PRAVASTATIN. [Concomitant]
     Active Substance: PRAVASTATIN
  4. BENZONATATE. [Concomitant]
     Active Substance: BENZONATATE
  5. LIORESAL [Concomitant]
     Active Substance: BACLOFEN
  6. PRILOSEC [Suspect]
     Active Substance: OMEPRAZOLE MAGNESIUM
     Indication: GASTROOESOPHAGEAL REFLUX DISEASE
     Route: 048
     Dates: start: 20160121
  7. HYDROCHLOROTHIAZIDE. [Concomitant]
     Active Substance: HYDROCHLOROTHIAZIDE
  8. NOVOLIN N [Concomitant]
     Active Substance: INSULIN HUMAN
  9. ASPIRIN. [Concomitant]
     Active Substance: ASPIRIN
  10. MEPERIDINE [Concomitant]
     Active Substance: MEPERIDINE
  11. MIRENA [Concomitant]
     Active Substance: LEVONORGESTREL
  12. ZITHROMAX [Concomitant]
     Active Substance: AZITHROMYCIN DIHYDRATE
  13. LANSOPRAZOLE. [Suspect]
     Active Substance: LANSOPRAZOLE
     Indication: GASTROOESOPHAGEAL REFLUX DISEASE
     Route: 065
     Dates: start: 2017
  14. METOCLOPRAMIDE. [Concomitant]
     Active Substance: METOCLOPRAMIDE
  15. ACIPHEX [Concomitant]
     Active Substance: RABEPRAZOLE SODIUM
  16. FLUTICASONE. [Concomitant]
     Active Substance: FLUTICASONE
  17. CLINDAMYCIN HYDROCHLORIDE. [Concomitant]
     Active Substance: CLINDAMYCIN HYDROCHLORIDE
  18. PRILOSEC [Suspect]
     Active Substance: OMEPRAZOLE MAGNESIUM
     Indication: GASTROOESOPHAGEAL REFLUX DISEASE
     Route: 048
     Dates: start: 20060101, end: 20111231
  19. PROTONIX [Suspect]
     Active Substance: PANTOPRAZOLE SODIUM
     Route: 048
     Dates: start: 20060101, end: 20111231
  20. GLYBURIDE. [Concomitant]
     Active Substance: GLYBURIDE
  21. LOVASTATIN. [Concomitant]
     Active Substance: LOVASTATIN
  22. NEXIUM [Concomitant]
     Active Substance: ESOMEPRAZOLE MAGNESIUM
     Route: 048
     Dates: start: 20090717
  23. VESICARE [Concomitant]
     Active Substance: SOLIFENACIN SUCCINATE
  24. PRILOSEC [Suspect]
     Active Substance: OMEPRAZOLE MAGNESIUM
     Indication: GASTROOESOPHAGEAL REFLUX DISEASE
     Dosage: OMEPRAZOLE
     Route: 048
     Dates: start: 20101208
  25. ATENOLOL. [Concomitant]
     Active Substance: ATENOLOL
  26. DARVOCET [Concomitant]
     Active Substance: ACETAMINOPHEN\PROPOXYPHENE HYDROCHLORIDE
  27. HYDROCODONE-ACETAMINOPHEN [Concomitant]
     Active Substance: ACETAMINOPHEN\HYDROCODONE
  28. LINEZOLID. [Concomitant]
     Active Substance: LINEZOLID
  29. LISINOPRIL. [Concomitant]
     Active Substance: LISINOPRIL
  30. SPIRONOLACTONE. [Concomitant]
     Active Substance: SPIRONOLACTONE
  31. NITROFURANTOIN. [Concomitant]
     Active Substance: NITROFURANTOIN
  32. K-TAB [Concomitant]
     Active Substance: POTASSIUM CHLORIDE
  33. FAMOTIDINE. [Concomitant]
     Active Substance: FAMOTIDINE
  34. CLARITHROMYCIN. [Concomitant]
     Active Substance: CLARITHROMYCIN
  35. CETIRIZINE [Concomitant]
     Active Substance: CETIRIZINE HYDROCHLORIDE
  36. AMITRIPTYLINE [Concomitant]
     Active Substance: AMITRIPTYLINE
  37. OCUFLOX [Concomitant]
     Active Substance: OFLOXACIN

REACTIONS (3)
  - Chronic kidney disease [Not Recovered/Not Resolved]
  - Renal injury [Unknown]
  - Acute kidney injury [Not Recovered/Not Resolved]

NARRATIVE: CASE EVENT DATE: 2009
